FAERS Safety Report 20553382 (Version 1)
Quarter: 2022Q1

REPORT INFORMATION
  Report Type: Spontaneous
  Country: US (occurrence: None)
  Receive Date: 20220304
  Receipt Date: 20220304
  Transmission Date: 20220424
  Serious: Yes (Other)
  Sender: FDA-Public Use
  Company Number: 2022A094346

PATIENT
  Age: 845 Month
  Sex: Female
  Weight: 55.8 kg

DRUGS (5)
  1. CALQUENCE [Suspect]
     Active Substance: ACALABRUTINIB
     Indication: Mantle cell lymphoma
     Route: 048
     Dates: start: 202108, end: 202110
  2. CALQUENCE [Suspect]
     Active Substance: ACALABRUTINIB
     Indication: Mantle cell lymphoma
     Route: 048
     Dates: start: 202110
  3. CALQUENCE [Concomitant]
     Active Substance: ACALABRUTINIB
     Indication: Mantle cell lymphoma
  4. GABAPENTIN [Concomitant]
     Active Substance: GABAPENTIN
     Indication: Hormone replacement therapy
  5. PEPCID [Concomitant]
     Active Substance: FAMOTIDINE

REACTIONS (6)
  - Lactic acidosis [Recovered/Resolved]
  - Dehydration [Recovered/Resolved]
  - Hypotension [Recovered/Resolved]
  - Diarrhoea [Recovered/Resolved]
  - Vomiting [Recovered/Resolved]
  - Rash [Recovered/Resolved]

NARRATIVE: CASE EVENT DATE: 20211001
